FAERS Safety Report 19203251 (Version 1)
Quarter: 2021Q2

REPORT INFORMATION
  Report Type: Spontaneous
  Country: US (occurrence: US)
  Receive Date: 20210430
  Receipt Date: 20210430
  Transmission Date: 20210717
  Serious: No
  Sender: FDA-Public Use
  Company Number: US-ROCHE-2769805

PATIENT
  Age: 14 Year
  Sex: Male

DRUGS (2)
  1. XOFLUZA [Suspect]
     Active Substance: BALOXAVIR MARBOXIL
     Indication: INFLUENZA
     Dosage: TWO 20MG XOFLUZA TABLETS ONE TIME DOSE
     Route: 048
     Dates: start: 20210211, end: 20210211
  2. XOFLUZA [Suspect]
     Active Substance: BALOXAVIR MARBOXIL
     Dosage: DISPENDED ONE 40 MG XOFLUZA TABLET
     Route: 048
     Dates: start: 20210211

REACTIONS (5)
  - Intentional product use issue [Unknown]
  - Product dispensing error [Unknown]
  - Off label use [Unknown]
  - Product packaging quantity issue [Unknown]
  - No adverse event [Unknown]

NARRATIVE: CASE EVENT DATE: 20210211
